FAERS Safety Report 10587783 (Version 3)
Quarter: 2014Q4

REPORT INFORMATION
  Report Type: Spontaneous
  Country: IT (occurrence: IT)
  Receive Date: 20141117
  Receipt Date: 20141208
  Transmission Date: 20150529
  Serious: Yes (Hospitalization)
  Sender: FDA-Public Use
  Company Number: IT-TEVA-521981ISR

PATIENT
  Age: 54 Year
  Sex: Female

DRUGS (7)
  1. LIMICAN [Concomitant]
     Indication: PREMEDICATION
     Dosage: 50 MILLIGRAM DAILY;
     Route: 042
     Dates: start: 20110406, end: 20141024
  2. ONDANSETRON B.BRAUN [Concomitant]
     Indication: PREMEDICATION
     Dosage: 8 MILLIGRAM DAILY;
     Route: 042
     Dates: start: 20100224, end: 20141030
  3. FLUOROURACILE AHCL [Suspect]
     Active Substance: FLUOROURACIL
     Indication: BREAST CANCER
     Route: 042
     Dates: start: 20141001, end: 20141024
  4. SOLDESAM [Concomitant]
     Active Substance: DEXAMETHASONE
     Indication: PREMEDICATION
     Dosage: 8 MILLIGRAM DAILY;
     Route: 042
     Dates: start: 20100224, end: 20141030
  5. CALCIO LEVOFOLINATO TEVA [Suspect]
     Active Substance: LEUCOVORIN CALCIUM
     Indication: BREAST CANCER
     Route: 042
     Dates: start: 20141001, end: 20141024
  6. NAVELBINE [Suspect]
     Active Substance: VINORELBINE TARTRATE
     Indication: BREAST CANCER
     Route: 042
     Dates: start: 20141001, end: 20141024
  7. RANITIDINA ANGENERICO [Concomitant]
     Active Substance: RANITIDINE HYDROCHLORIDE
     Indication: PREMEDICATION
     Dosage: 50 MILLIGRAM DAILY;
     Route: 042
     Dates: start: 20110406, end: 20141030

REACTIONS (7)
  - Abdominal pain upper [Recovered/Resolved]
  - Leukocytosis [Recovered/Resolved]
  - Hypocalcaemia [Recovered/Resolved]
  - Hypokalaemia [Recovered/Resolved]
  - Diarrhoea [Recovered/Resolved]
  - Anaemia [Recovered/Resolved]
  - Hypercreatinaemia [Recovered/Resolved]

NARRATIVE: CASE EVENT DATE: 20141103
